FAERS Safety Report 9734622 (Version 2)
Quarter: 2014Q1

REPORT INFORMATION
  Report Type: Spontaneous
  Country: FR (occurrence: FR)
  Receive Date: 20131206
  Receipt Date: 20140115
  Transmission Date: 20141002
  Serious: Yes (Other)
  Sender: FDA-Public Use
  Company Number: FR-ROCHE-1312524

PATIENT
  Age: 85 Year
  Sex: Female
  Weight: 65 kg

DRUGS (6)
  1. MIRCERA [Suspect]
     Indication: NEPHROGENIC ANAEMIA
     Route: 065
     Dates: start: 20131004
  2. MIRCERA [Suspect]
     Route: 065
     Dates: start: 20131028
  3. MIRCERA [Suspect]
     Route: 065
     Dates: start: 20131122
  4. MIMPARA [Concomitant]
  5. ZYLORIC [Concomitant]
  6. KARDEGIC [Concomitant]

REACTIONS (2)
  - Venous thrombosis [Unknown]
  - Fibrin D dimer increased [Unknown]
